FAERS Safety Report 5062795-6 (Version None)
Quarter: 2006Q3

REPORT INFORMATION
  Report Type: 
  Country: None (occurrence: None)
  Receive Date: 20060724
  Receipt Date: 20060710
  Transmission Date: 20061208
  Serious: Yes (Hospitalization)
  Sender: FDA-Public Use
  Company Number: 2006088097

PATIENT
  Age: 72 Year
  Sex: Male

DRUGS (12)
  1. ATARAX [Suspect]
     Indication: ANXIETY
  2. LASIX [Suspect]
     Indication: CARDIAC FAILURE
  3. DIGOXIN [Suspect]
     Indication: ATRIAL FIBRILLATION
     Dosage: ORAL
     Route: 048
  4. DIGOXIN [Suspect]
     Indication: ATRIAL FLUTTER
     Dosage: ORAL
     Route: 048
  5. PREVISCAN (FLUINDIONE) [Suspect]
     Indication: ATRIAL FIBRILLATION
     Dosage: ORAL
     Route: 048
  6. PREVISCAN (FLUINDIONE) [Suspect]
     Indication: ATRIAL FLUTTER
     Dosage: ORAL
     Route: 048
  7. NOCTRAN 10 (ACEPROMAZINE, ACEPROMETAZINE, CLORAZEPATE DIPOTASSIUM) [Suspect]
     Indication: SLEEP DISORDER
     Dosage: ORAL
     Route: 048
  8. CODARONE (AMIODARONE HYDROCHLORIDE) [Suspect]
     Indication: ATRIAL FIBRILLATION
     Dosage: ORAL
     Route: 048
  9. CODARONE (AMIODARONE HYDROCHLORIDE) [Suspect]
     Indication: ATRIAL FLUTTER
     Dosage: ORAL
     Route: 048
  10. CITALOPRAM HYDROBROMIDE [Concomitant]
  11. PRAZEPAM [Concomitant]
  12. DIGOXIN [Concomitant]

REACTIONS (2)
  - LICHEN PLANUS [None]
  - TOXIC SKIN ERUPTION [None]
